FAERS Safety Report 17781626 (Version 2)
Quarter: 2020Q2

REPORT INFORMATION
  Report Type: Spontaneous
  Country: US (occurrence: US)
  Receive Date: 20200514
  Receipt Date: 20200608
  Transmission Date: 20200714
  Serious: No
  Sender: FDA-Public Use
  Company Number: US-MYLANLABS-2020M1044761

PATIENT
  Sex: Female
  Weight: 68 kg

DRUGS (3)
  1. PERFOROMIST [Suspect]
     Active Substance: FORMOTEROL FUMARATE DIHYDRATE
     Indication: CHRONIC OBSTRUCTIVE PULMONARY DISEASE
     Dosage: UNK UNK, BID
     Route: 055
  2. PERFOROMIST [Suspect]
     Active Substance: FORMOTEROL FUMARATE DIHYDRATE
     Indication: EMPHYSEMA
     Dosage: UNK, QD (DOSE REDUCED)
  3. PERFOROMIST [Suspect]
     Active Substance: FORMOTEROL FUMARATE DIHYDRATE
     Dosage: 10 MILLIGRAM, (REDUCE DOSAGE BY HALF)
     Route: 055

REACTIONS (3)
  - Fatigue [Recovered/Resolved]
  - Faeces discoloured [Not Recovered/Not Resolved]
  - Intentional product use issue [Unknown]
